FAERS Safety Report 5675697-9 (Version None)
Quarter: 2008Q1

REPORT INFORMATION
  Report Type: 
  Country: None (occurrence: None)
  Receive Date: 20080321
  Receipt Date: 20080313
  Transmission Date: 20080703
  Serious: Yes (Hospitalization)
  Sender: FDA-Public Use
  Company Number: PHBS2008RU03423

PATIENT
  Age: 45 Year
  Sex: Female

DRUGS (1)
  1. ACLASTA [Suspect]
     Indication: OSTEOPOROSIS
     Dates: start: 20080304

REACTIONS (3)
  - COUGH [None]
  - PNEUMONIA VIRAL [None]
  - PYREXIA [None]
